FAERS Safety Report 17337281 (Version 3)
Quarter: 2020Q2

REPORT INFORMATION
  Report Type: Report from Study
  Country: US (occurrence: US)
  Receive Date: 20200129
  Receipt Date: 20200519
  Transmission Date: 20200713
  Serious: No
  Sender: FDA-Public Use
  Company Number: NVSC2020US020276

PATIENT
  Age: 45 Year
  Sex: Male

DRUGS (2)
  1. EPIPEN [Concomitant]
     Active Substance: EPINEPHRINE
     Indication: ALLERGY TO PLANTS
     Dosage: UNK
     Route: 065
     Dates: start: 20200102
  2. GILENYA [Suspect]
     Active Substance: FINGOLIMOD HYDROCHLORIDE
     Indication: MULTIPLE SCLEROSIS
     Dosage: UNK
     Route: 048

REACTIONS (3)
  - Urticaria [Recovered/Resolved]
  - Joint swelling [Recovered/Resolved]
  - Chondritis [Recovered/Resolved]

NARRATIVE: CASE EVENT DATE: 20191204
